FAERS Safety Report 24887364 (Version 2)
Quarter: 2025Q1

REPORT INFORMATION
  Report Type: Spontaneous
  Country: US (occurrence: US)
  Receive Date: 20250127
  Receipt Date: 20250217
  Transmission Date: 20250409
  Serious: No
  Sender: Tarsus Pharmaceuticals
  Company Number: US-TARSUS PHARMACEUTICALS-TSP-US-2025-000008

PATIENT
  Age: 38 Year
  Sex: Male

DRUGS (2)
  1. XDEMVY [Suspect]
     Active Substance: LOTILANER
     Indication: Demodex blepharitis
     Route: 047
     Dates: start: 20241228
  2. XDEMVY [Suspect]
     Active Substance: LOTILANER
     Dosage: 1 DROP, QD (IN THE MORNING AND ONLY IN THE RIGHT EYE)
     Route: 047
     Dates: start: 20241228

REACTIONS (3)
  - Uveitis [Unknown]
  - Vision blurred [Recovered/Resolved]
  - Eye inflammation [Recovered/Resolved]
